FAERS Safety Report 6291466-3 (Version None)
Quarter: 2009Q3

REPORT INFORMATION
  Report Type: 
  Country: None (occurrence: None)
  Receive Date: 20090730
  Receipt Date: 20090723
  Transmission Date: 20100115
  Serious: Yes (Hospitalization)
  Sender: FDA-Public Use
  Company Number: AU-ASTRAZENECA-2009SE05521

PATIENT
  Age: 52 Year
  Sex: Female
  Weight: 97 kg

DRUGS (1)
  1. ATACAND [Suspect]
     Indication: ESSENTIAL HYPERTENSION
     Route: 048
     Dates: start: 20071005, end: 20071020

REACTIONS (2)
  - BLOOD PRESSURE INCREASED [None]
  - URTICARIA [None]
